FAERS Safety Report 6211558-4 (Version None)
Quarter: 2009Q2

REPORT INFORMATION
  Report Type: 
  Country: None (occurrence: None)
  Receive Date: 20090528
  Receipt Date: 20090514
  Transmission Date: 20091009
  Serious: Yes (Other)
  Sender: FDA-Public Use
  Company Number: MC200900191

PATIENT
  Age: 45 Year
  Sex: Male

DRUGS (3)
  1. ANGIOMAX [Suspect]
     Indication: CORONARY ARTERIAL STENT INSERTION
     Dates: start: 20090101, end: 20090101
  2. ANGIOMAX [Suspect]
     Indication: PERCUTANEOUS CORONARY INTERVENTION
     Dates: start: 20090101, end: 20090101
  3. PLAVIX [Concomitant]

REACTIONS (1)
  - STENT OCCLUSION [None]
